FAERS Safety Report 7407647-9 (Version None)
Quarter: 2011Q2

REPORT INFORMATION
  Report Type: 
  Country: None (occurrence: None)
  Receive Date: 20110404
  Receipt Date: 20110321
  Transmission Date: 20111010
  Serious: Yes (Hospitalization)
  Sender: FDA-Public Use
  Company Number: 11-145

PATIENT
  Age: 49 Year
  Sex: Female

DRUGS (5)
  1. AMITRIPTYLINE [Suspect]
     Dosage: 420 MG ORAL
     Dates: start: 20100101
  2. IBUPROFEN [Suspect]
     Dosage: 120 MG ORAL
     Route: 048
     Dates: start: 20100101
  3. PETHIDINE [Suspect]
     Dosage: 300 MG ORAL
     Route: 048
     Dates: start: 20100101
  4. DIAZEPAM [Suspect]
     Dosage: 26 MG ORAL
     Route: 048
     Dates: start: 20100101
  5. NIZATIDINE [Suspect]
     Dosage: 1.2 G ORAL
     Route: 048
     Dates: start: 20100101

REACTIONS (8)
  - BLOOD GLUCOSE INCREASED [None]
  - LOSS OF CONSCIOUSNESS [None]
  - MULTIPLE DRUG OVERDOSE INTENTIONAL [None]
  - RESPIRATORY RATE DECREASED [None]
  - BLOOD PRESSURE DECREASED [None]
  - PCO2 INCREASED [None]
  - BLOOD PH DECREASED [None]
  - PO2 INCREASED [None]
